FAERS Safety Report 5513827-X (Version None)
Quarter: 2007Q4

REPORT INFORMATION
  Report Type: 
  Country: None (occurrence: None)
  Receive Date: 20071113
  Receipt Date: 20071102
  Transmission Date: 20080405
  Serious: Yes (Death, Other)
  Sender: FDA-Public Use
  Company Number: CA-ELI_LILLY_AND_COMPANY-CA200711001653

PATIENT
  Sex: Female

DRUGS (13)
  1. ZYPREXA [Suspect]
     Dosage: 20 MG, EACH EVENING
  2. CLOZARIL [Concomitant]
     Indication: SCHIZOPHRENIA
     Dosage: 12.5 MG, EACH EVENING
     Route: 048
     Dates: start: 20040401, end: 20040405
  3. CLOZARIL [Concomitant]
     Dosage: 25 MG, EACH EVENING
     Route: 048
     Dates: start: 20040406, end: 20040412
  4. CLOZARIL [Concomitant]
     Dosage: 37.5 MG, DAILY (1/D)
     Route: 048
     Dates: start: 20040413, end: 20040419
  5. CLOZARIL [Concomitant]
     Dosage: 50 MG, DAILY (1/D)
     Route: 048
     Dates: start: 20040420, end: 20040426
  6. CLOZARIL [Concomitant]
     Dosage: 62.5 MG, DAILY (1/D)
     Route: 048
     Dates: start: 20040427, end: 20040503
  7. CLOZARIL [Concomitant]
     Dosage: 75 MG, DAILY (1/D)
     Route: 048
     Dates: start: 20040504, end: 20040510
  8. CLOZARIL [Concomitant]
     Dosage: 50 MG, DAILY (1/D)
     Route: 048
     Dates: start: 20040511, end: 20040517
  9. CLOZARIL [Concomitant]
     Dosage: 25 MG, EACH EVENING
     Route: 048
     Dates: start: 20040516, end: 20040520
  10. CLOZARIL [Concomitant]
     Dosage: 12.5 MG, EACH EVENING
     Route: 048
     Dates: start: 20040521, end: 20040601
  11. EPIVAL [Concomitant]
     Dosage: 1000 MG, DAILY (1/D)
  12. CLONAZEPAM [Concomitant]
     Dosage: 2 MG, AS NEEDED
  13. ATIVAN [Concomitant]
     Dosage: 2 MG, 2/D

REACTIONS (15)
  - ABDOMINAL ABSCESS [None]
  - AGITATION [None]
  - CARCINOID TUMOUR OF THE GASTROINTESTINAL TRACT [None]
  - COLD SWEAT [None]
  - DYSPNOEA [None]
  - FAECAL INCONTINENCE [None]
  - GASTROINTESTINAL NECROSIS [None]
  - LARGE INTESTINE PERFORATION [None]
  - METASTASES TO LIVER [None]
  - PERITONITIS [None]
  - SALIVARY HYPERSECRETION [None]
  - SOMNOLENCE [None]
  - SPEECH DISORDER [None]
  - THROMBOCYTHAEMIA [None]
  - URINARY INCONTINENCE [None]
